FAERS Safety Report 10574775 (Version 3)
Quarter: 2014Q4

REPORT INFORMATION
  Report Type: Report from Study
  Country: DE (occurrence: DE)
  Receive Date: 20141110
  Receipt Date: 20141121
  Transmission Date: 20150529
  Serious: Yes (Death, Other)
  Sender: FDA-Public Use
  Company Number: DE-ABBVIE-12P-062-1010149-00

PATIENT
  Age: 76 Year
  Sex: Male

DRUGS (2)
  1. 5-ALPHA-REDUCTASE INHIBITOR NOS [Concomitant]
     Indication: PRODUCT USED FOR UNKNOWN INDICATION
  2. LEUPRORELIN [Suspect]
     Active Substance: LEUPROLIDE ACETATE
     Indication: PROSTATE CANCER
     Route: 065
     Dates: start: 20120618, end: 20130923

REACTIONS (3)
  - Haemoglobin decreased [Unknown]
  - Dysuria [Unknown]
  - Myocardial infarction [Fatal]
